FAERS Safety Report 6533996-2 (Version None)
Quarter: 2010Q1

REPORT INFORMATION
  Report Type: 
  Country: None (occurrence: None)
  Receive Date: 20100112
  Receipt Date: 20100106
  Transmission Date: 20100710
  Serious: Yes (Other)
  Sender: FDA-Public Use
  Company Number: US-ELI_LILLY_AND_COMPANY-US200911003231

PATIENT
  Sex: Female
  Weight: 88.889 kg

DRUGS (11)
  1. BYETTA [Suspect]
     Dosage: 5 UG, 2/D
     Route: 058
     Dates: start: 20080901
  2. BYETTA [Suspect]
     Dosage: 10 UG, 2/D
     Route: 058
     Dates: end: 20090924
  3. DIOVAN [Concomitant]
     Indication: HYPERTENSION
     Dosage: 320 MG, DAILY (1/D)
     Route: 048
  4. METFORMIN HYDROCHLORIDE [Concomitant]
     Indication: DIABETES MELLITUS
     Dosage: 750 MG, 2/D
  5. LANTUS [Concomitant]
     Indication: DIABETES MELLITUS
     Dosage: UNK, EACH EVENING
     Route: 058
     Dates: start: 20060101
  6. HUMALOG [Concomitant]
     Indication: DIABETES MELLITUS
     Dosage: 7 U, EACH MORNING
     Route: 058
     Dates: start: 20070101
  7. CYMBALTA [Concomitant]
     Indication: NEUROPATHY PERIPHERAL
     Dosage: 60 MG, 2/D
     Route: 048
  8. COREG [Concomitant]
     Indication: HYPERTENSION
     Dosage: 6.25 MG, 2/D
     Route: 048
  9. EVISTA [Concomitant]
     Indication: OSTEOPENIA
     Dosage: 60 MG, DAILY (1/D)
     Route: 048
  10. NEURONTIN [Concomitant]
     Indication: NEUROPATHY PERIPHERAL
     Dosage: 600 MG, 2/D
     Route: 048
  11. PRAVASTATIN [Concomitant]
     Indication: LIPIDS
     Dosage: 40 MG, DAILY (1/D)

REACTIONS (3)
  - OFF LABEL USE [None]
  - PANCREATITIS [None]
  - WEIGHT INCREASED [None]
